FAERS Safety Report 8319800-0 (Version None)
Quarter: 2012Q2

REPORT INFORMATION
  Report Type: 
  Country: None (occurrence: None)
  Receive Date: 20120427
  Receipt Date: 20120423
  Transmission Date: 20120825
  Serious: Yes (Other)
  Sender: FDA-Public Use
  Company Number: CH-ROXANE LABORATORIES, INC.-2012-RO-01100RO

PATIENT
  Age: 44 Year
  Sex: Male

DRUGS (5)
  1. CYCLOSPORINE [Suspect]
     Indication: HEART TRANSPLANT
     Dosage: 200 MG
  2. EVEROLIMUS [Suspect]
     Indication: HEART TRANSPLANT
     Dosage: 1.5 MG
  3. AZATHIOPRINE [Suspect]
     Dosage: 25 MG
  4. AZATHIOPRINE [Suspect]
     Indication: HEART TRANSPLANT
     Dosage: 12.5 MG
  5. CYCLOSPORINE [Suspect]
     Dosage: 50 MG

REACTIONS (10)
  - SQUAMOUS CELL CARCINOMA [None]
  - ERYSIPELAS [None]
  - OSTEOMYELITIS [None]
  - CELLULITIS [None]
  - DIABETIC FOOT [None]
  - WOUND COMPLICATION [None]
  - POLYNEUROPATHY [None]
  - STAPHYLOCOCCAL INFECTION [None]
  - PSEUDOMONAS INFECTION [None]
  - DIABETES MELLITUS [None]
